FAERS Safety Report 16354872 (Version 1)
Quarter: 2019Q2

REPORT INFORMATION
  Report Type: Spontaneous
  Country: US (occurrence: US)
  Receive Date: 20190524
  Receipt Date: 20190524
  Transmission Date: 20190711
  Serious: Yes (Death, Other)
  Sender: FDA-Public Use
  Company Number: US-SUNOVION-2019SUN002171

PATIENT
  Age: 75 Year
  Sex: Female
  Weight: 79.37 kg

DRUGS (1)
  1. LONHALA MAGNAIR [Suspect]
     Active Substance: GLYCOPYRROLATE
     Indication: CHRONIC OBSTRUCTIVE PULMONARY DISEASE
     Dosage: UNK
     Route: 055
     Dates: start: 2019

REACTIONS (3)
  - Death [Fatal]
  - Product administration error [Unknown]
  - Product dose omission [Unknown]

NARRATIVE: CASE EVENT DATE: 20190521
